FAERS Safety Report 5742626-9 (Version None)
Quarter: 2008Q2

REPORT INFORMATION
  Report Type: 
  Country: None (occurrence: None)
  Receive Date: 20080519
  Receipt Date: 20080509
  Transmission Date: 20081010
  Serious: Yes (Hospitalization, Other)
  Sender: FDA-Public Use
  Company Number: US-AMGEN-QUU269716

PATIENT
  Sex: Female
  Weight: 92.6 kg

DRUGS (5)
  1. ENBREL [Suspect]
     Indication: PSORIATIC ARTHROPATHY
     Route: 058
     Dates: start: 19990101
  2. ENBREL [Suspect]
     Indication: PSORIASIS
  3. VITAMIN CAP [Concomitant]
     Route: 048
     Dates: start: 20060911
  4. FERRO-SEQUELS [Concomitant]
     Route: 048
     Dates: start: 20060911
  5. ASCORBIC ACID [Concomitant]
     Route: 048
     Dates: start: 20060911

REACTIONS (5)
  - ABORTION SPONTANEOUS [None]
  - INJECTION SITE IRRITATION [None]
  - INJECTION SITE PAIN [None]
  - OBESITY [None]
  - PLACENTA PRAEVIA [None]
